FAERS Safety Report 10047015 (Version 1)
Quarter: 2014Q1

REPORT INFORMATION
  Report Type: Spontaneous
  Country: CZ (occurrence: None)
  Receive Date: 20140327
  Receipt Date: 20140327
  Transmission Date: 20141002
  Serious: Yes (Hospitalization)
  Sender: FDA-Public Use
  Company Number: 2014MPI00097

PATIENT
  Age: 68 Year
  Sex: Male
  Weight: 47 kg

DRUGS (1)
  1. BRENTUXIMAB VEDOTIN (BRENTUXIMAB VEDOTIN) INJECTION [Suspect]
     Indication: ANAPLASTIC LARGE-CELL LYMPHOMA
     Dosage: Q21D
     Route: 042
     Dates: start: 20140130, end: 20140130

REACTIONS (4)
  - Malnutrition [None]
  - Diarrhoea [None]
  - Flatulence [None]
  - Hypoalbuminaemia [None]
